FAERS Safety Report 9949944 (Version 2)
Quarter: 2014Q1

REPORT INFORMATION
  Report Type: Spontaneous
  Country: PR (occurrence: PR)
  Receive Date: 20140304
  Receipt Date: 20140304
  Transmission Date: 20141002
  Serious: No
  Sender: FDA-Public Use
  Company Number: PR-ABBVIE-13P-131-1048626-00

PATIENT
  Age: 28 Year
  Sex: Female

DRUGS (3)
  1. HUMIRA [Suspect]
     Indication: RHEUMATOID ARTHRITIS
     Route: 058
     Dates: start: 2010, end: 20130207
  2. HUMIRA [Suspect]
     Route: 058
     Dates: start: 20130222
  3. RELAFEN [Concomitant]
     Indication: PAIN
     Route: 048
     Dates: start: 2010

REACTIONS (1)
  - Nasopharyngitis [Recovered/Resolved]
